FAERS Safety Report 17193957 (Version 1)
Quarter: 2019Q4

REPORT INFORMATION
  Report Type: Spontaneous
  Country: FR (occurrence: FR)
  Receive Date: 20191223
  Receipt Date: 20191223
  Transmission Date: 20200122
  Serious: Yes (Other)
  Sender: FDA-Public Use
  Company Number: FR-MYLANLABS-2019M1126655

PATIENT
  Age: 63 Year
  Sex: Male

DRUGS (7)
  1. ONDANSETRON [Suspect]
     Active Substance: ONDANSETRON
     Indication: PROPHYLAXIS OF NAUSEA AND VOMITING
     Dosage: 8 MG MATIN ET SOIR
     Route: 048
     Dates: start: 20190702, end: 20190702
  2. IRINOTECAN FRESENIUS [Suspect]
     Active Substance: IRINOTECAN
     Indication: RECTAL ADENOCARCINOMA
     Dosage: 347 MILLIGRAM, CYCLE
     Route: 042
     Dates: start: 20190702, end: 20190702
  3. ATROPINA AGUETTANT [Suspect]
     Active Substance: ATROPINE SULFATE
     Indication: MUSCLE SPASMS
     Dosage: 0.25 MILLIGRAM, CYCLE
     Route: 042
     Dates: start: 20190702, end: 20190702
  4. OXALIPLATINE ACCORD [Suspect]
     Active Substance: OXALIPLATIN
     Indication: RECTAL ADENOCARCINOMA
     Dosage: 164 MILLIGRAM, CYCLE
     Route: 042
     Dates: start: 20190702, end: 20190702
  5. PREDNISONE. [Suspect]
     Active Substance: PREDNISONE
     Indication: PROPHYLAXIS OF NAUSEA AND VOMITING
     Dosage: 20 MG LE MATIN
     Route: 048
     Dates: start: 20190702, end: 20190702
  6. APREPITANT. [Suspect]
     Active Substance: APREPITANT
     Indication: PROPHYLAXIS OF NAUSEA AND VOMITING
     Dosage: 125 MG J1 PUIS 80 MG J2J3
     Route: 048
     Dates: start: 20190702, end: 20190704
  7. LEVOFOLINATE CALCIUM [Suspect]
     Active Substance: LEVOLEUCOVORIN CALCIUM
     Indication: PROPHYLACTIC CHEMOTHERAPY
     Dosage: 38.6 MILLIGRAM, CYCLE
     Route: 042
     Dates: start: 20190702, end: 20190702

REACTIONS (7)
  - Hypertension [Recovered/Resolved]
  - Feeling of body temperature change [Recovered/Resolved]
  - Nausea [Recovered/Resolved]
  - Hyperhidrosis [Recovered/Resolved]
  - Hot flush [Recovered/Resolved]
  - Hypersensitivity [Recovered/Resolved]
  - Muscle spasms [Recovered/Resolved]

NARRATIVE: CASE EVENT DATE: 20190702
